FAERS Safety Report 7369524-1 (Version None)
Quarter: 2011Q1

REPORT INFORMATION
  Report Type: 
  Country: None (occurrence: None)
  Receive Date: 20110314
  Receipt Date: 20110225
  Transmission Date: 20110831
  Serious: Yes (Hospitalization, Other)
  Sender: FDA-Public Use
  Company Number: AUR-APL-2011-00885

PATIENT
  Age: 66 Year
  Sex: Male

DRUGS (6)
  1. VENLAFAXINE [Suspect]
     Indication: DEPRESSION
     Dosage: 75MG-BID
     Dates: start: 20090601, end: 20100101
  2. LISINOPRIL/HYDROCHLORITHIAZIDE [Concomitant]
  3. LORAZEPAM [Concomitant]
  4. VENLAFAXINE [Suspect]
     Indication: DEPRESSION
     Dosage: 75MG-QD
     Dates: start: 20100101, end: 20100101
  5. CETIRIZINE HYDROCHLORIDE [Concomitant]
  6. OMEPRAZOLE [Concomitant]

REACTIONS (18)
  - RAPID EYE MOVEMENTS SLEEP ABNORMAL [None]
  - PARAESTHESIA [None]
  - WEIGHT INCREASED [None]
  - FALL [None]
  - ANXIETY [None]
  - AGGRESSION [None]
  - DRUG WITHDRAWAL SYNDROME [None]
  - INJURY [None]
  - LACERATION [None]
  - ABNORMAL SLEEP-RELATED EVENT [None]
  - CONDITION AGGRAVATED [None]
  - DISTURBANCE IN ATTENTION [None]
  - INSOMNIA [None]
  - CONTUSION [None]
  - TINNITUS [None]
  - ABNORMAL DREAMS [None]
  - DEPRESSION [None]
  - BLOOD PRESSURE SYSTOLIC INCREASED [None]
